FAERS Safety Report 6623568-3 (Version None)
Quarter: 2010Q1

REPORT INFORMATION
  Report Type: 
  Country: None (occurrence: None)
  Receive Date: 20100310
  Receipt Date: 20100226
  Transmission Date: 20100710
  Serious: Yes (Death, Life-Threatening, Other)
  Sender: FDA-Public Use
  Company Number: IN-PFIZER INC-2010026304

PATIENT
  Age: 65 Year
  Sex: Female
  Weight: 70 kg

DRUGS (4)
  1. ERAXIS [Suspect]
     Indication: SYSTEMIC CANDIDA
     Dosage: 200 MG, 2X/DAY
     Route: 042
     Dates: start: 20100221
  2. ERAXIS [Suspect]
     Dosage: 100 MG, 1X/DAY
     Route: 042
     Dates: start: 20100222, end: 20100224
  3. IMIPENEM AND CILASTATIN SODIUM [Concomitant]
     Dosage: 500 MG, 3X/DAY
     Route: 042
  4. CLINDAMYCIN HCL [Concomitant]
     Dosage: 600 MG, 3X/DAY

REACTIONS (5)
  - ENDOTRACHEAL INTUBATION COMPLICATION [None]
  - HAEMORRHAGE [None]
  - IMPLANT SITE HAEMORRHAGE [None]
  - SEPTIC SHOCK [None]
  - THROMBOCYTOPENIA [None]
